FAERS Safety Report 8440786-2 (Version None)
Quarter: 2012Q2

REPORT INFORMATION
  Report Type: 
  Country: None (occurrence: None)
  Receive Date: 20120615
  Receipt Date: 20120606
  Transmission Date: 20120825
  Serious: Yes (Hospitalization)
  Sender: FDA-Public Use
  Company Number: US-BAYER-2012-056377

PATIENT
  Age: 43 Year
  Sex: Female
  Weight: 86.168 kg

DRUGS (16)
  1. FLUCONAZOLE [Concomitant]
     Dosage: 150 MG, UNK
     Dates: start: 20100630
  2. ASPIRIN [Concomitant]
     Dosage: UNK
     Dates: start: 20100419
  3. LORTAB [Concomitant]
     Dosage: 10 MG, PRN
  4. ORTHO-NOVUM [Concomitant]
  5. LORTAB [Concomitant]
     Indication: PAIN
  6. FEXOFENADINE HYDROCHLORIDE [Concomitant]
     Dosage: 180 MG, UNK
     Dates: start: 20100620
  7. CHERATUSSIN AC [Concomitant]
     Dosage: UNK
     Dates: start: 20100622
  8. YAZ [Suspect]
     Indication: MENOPAUSAL SYMPTOMS
     Dosage: UNK
     Dates: start: 20100827
  9. DROSPIRENONE AND ETHINYL ESTRADIOL [Suspect]
     Indication: MENOPAUSAL SYMPTOMS
  10. DEPO-MEDROL [Concomitant]
     Dosage: 120 MG, UNK
     Route: 030
     Dates: start: 20100816
  11. ALLEGRA [Concomitant]
     Dosage: DAILY
  12. AMOXICILLIN [Concomitant]
     Dosage: 500 MG, UNK
     Dates: start: 20100622
  13. MUCINEX DM [Concomitant]
  14. YAZ [Suspect]
     Indication: MENSTRUATION IRREGULAR
     Dosage: UNK
     Dates: start: 20100603, end: 20100714
  15. YAZ [Suspect]
     Indication: CONTRACEPTION
  16. DROSPIRENONE AND ETHINYL ESTRADIOL [Suspect]
     Indication: MENSTRUATION IRREGULAR
     Dosage: UNK
     Dates: start: 20100714, end: 20100808

REACTIONS (5)
  - PULMONARY EMBOLISM [None]
  - DYSPNOEA [None]
  - CHEST PAIN [None]
  - DYSPNOEA EXERTIONAL [None]
  - PLEURITIC PAIN [None]
